FAERS Safety Report 6819486-8 (Version None)
Quarter: 2010Q3

REPORT INFORMATION
  Report Type: 
  Country: None (occurrence: None)
  Receive Date: 20100707
  Receipt Date: 20100623
  Transmission Date: 20110219
  Serious: Yes (Hospitalization)
  Sender: FDA-Public Use
  Company Number: PHHY2010US38677

PATIENT
  Sex: Female
  Weight: 57.15 kg

DRUGS (1)
  1. EXJADE [Suspect]
     Indication: MYELODYSPLASTIC SYNDROME
     Dosage: 1000 MG,DAILY
     Route: 048
     Dates: start: 20080626

REACTIONS (2)
  - ANAEMIA [None]
  - REFUSAL OF TREATMENT BY PATIENT [None]
